FAERS Safety Report 6185635-0 (Version None)
Quarter: 2009Q2

REPORT INFORMATION
  Report Type: 
  Country: None (occurrence: None)
  Receive Date: 20090507
  Receipt Date: 20090427
  Transmission Date: 20091009
  Serious: Yes (Hospitalization)
  Sender: FDA-Public Use
  Company Number: 2009AP001722

PATIENT
  Age: 52 Year
  Sex: Male

DRUGS (4)
  1. HALOPERIDOL DECANOATE [Suspect]
     Indication: DELIRIUM
     Dosage: 5 MG;QD; IM
     Route: 030
  2. QUETIAPINE FUMARATE [Suspect]
     Indication: DELIRIUM
     Dosage: 12.5 MG;BID; PO
     Route: 048
  3. MEPERIDINE HCL [Concomitant]
  4. HYDROMORPHONE HCL [Concomitant]

REACTIONS (5)
  - BLOOD PRESSURE INCREASED [None]
  - DISORIENTATION [None]
  - DYSARTHRIA [None]
  - GENERAL PHYSICAL HEALTH DETERIORATION [None]
  - NEUROLEPTIC MALIGNANT SYNDROME [None]
